FAERS Safety Report 4562765-8 (Version None)
Quarter: 2005Q1

REPORT INFORMATION
  Report Type: 
  Country: None (occurrence: None)
  Receive Date: 20050121
  Receipt Date: 20050106
  Transmission Date: 20050727
  Serious: Yes (Life-Threatening)
  Sender: FDA-Public Use
  Company Number: GXKR2005CA00467

PATIENT
  Age: 64 Year
  Sex: Female

DRUGS (5)
  1. DORIDEN [Suspect]
     Indication: MEDICATION ERROR
  2. FLURAZEPAM [Suspect]
     Indication: MEDICATION ERROR
  3. ASPIRIN [Concomitant]
  4. FLOVENT [Concomitant]
  5. ATACAND [Concomitant]

REACTIONS (9)
  - BLOOD PRESSURE DECREASED [None]
  - DRUG SCREEN POSITIVE [None]
  - HYPERCAPNIA [None]
  - LOSS OF CONSCIOUSNESS [None]
  - MIOSIS [None]
  - MULTIPLE DRUG OVERDOSE [None]
  - PUPIL FIXED [None]
  - RESPIRATORY RATE DECREASED [None]
  - STUPOR [None]
